FAERS Safety Report 15022349 (Version 1)
Quarter: 2018Q2

REPORT INFORMATION
  Report Type: Spontaneous
  Country: GB (occurrence: GB)
  Receive Date: 20180618
  Receipt Date: 20180618
  Transmission Date: 20180711
  Serious: Yes (Hospitalization, Other)
  Sender: FDA-Public Use
  Company Number: GB-TEVA-2018-GB-910568

PATIENT
  Age: 46 Year
  Sex: Female
  Weight: 57.3 kg

DRUGS (7)
  1. ZINC. [Concomitant]
     Active Substance: ZINC
  2. LYMECYCLINE [Suspect]
     Active Substance: LYMECYCLINE
     Indication: ROSACEA
     Dosage: 408 MILLIGRAM DAILY;
     Route: 048
     Dates: start: 20180305, end: 20180425
  3. OMEGA-3-ACID TRIGLYCERIDES [Suspect]
     Active Substance: OMEGA-3 FATTY ACIDS
     Dosage: 1-2 CAPSULES PER DAY
     Route: 048
     Dates: start: 20180321, end: 20180425
  4. CALCIUM [Concomitant]
     Active Substance: CALCIUM
  5. VITAMIN B COMPLEX [Suspect]
     Active Substance: CYANOCOBALAMIN\DEXPANTHENOL\NIACINAMIDE\PYRIDOXINE HYDROCHLORIDE\RIBOFLAVIN 5^-PHOSPHATE SODIUM\THIAMINE HYDROCHLORIDE\VITAMIN B COMPLEX
     Dosage: 1 DOSAGE FORMS DAILY;
     Route: 048
     Dates: start: 20180424, end: 20180425
  6. MAGNESIUM [Concomitant]
     Active Substance: MAGNESIUM
  7. VITAMIN D [Concomitant]
     Active Substance: CHOLECALCIFEROL

REACTIONS (10)
  - Vision blurred [Not Recovered/Not Resolved]
  - Dizziness [Recovered/Resolved with Sequelae]
  - Dermatitis allergic [Recovered/Resolved]
  - Dyspnoea [Recovered/Resolved]
  - Swelling face [Recovered/Resolved]
  - Hot flush [Recovered/Resolved]
  - Headache [Not Recovered/Not Resolved]
  - Heart rate increased [Recovered/Resolved]
  - Nausea [Not Recovered/Not Resolved]
  - Eye swelling [Unknown]

NARRATIVE: CASE EVENT DATE: 20180425
